FAERS Safety Report 6736201-7 (Version None)
Quarter: 2010Q2

REPORT INFORMATION
  Report Type: 
  Country: None (occurrence: None)
  Receive Date: 20100521
  Receipt Date: 20100512
  Transmission Date: 20101027
  Serious: Yes (Other)
  Sender: FDA-Public Use
  Company Number: US-ROCHE-703893

PATIENT
  Age: 16 Year
  Sex: Female
  Weight: 61.4 kg

DRUGS (3)
  1. ROCEPHIN [Suspect]
     Indication: LYME DISEASE
     Route: 042
     Dates: start: 20091101, end: 20100301
  2. ACTIGALL [Suspect]
     Route: 065
  3. MINOCYCLINE HCL [Concomitant]

REACTIONS (1)
  - CHOLELITHIASIS [None]
